FAERS Safety Report 11140531 (Version 5)
Quarter: 2016Q2

REPORT INFORMATION
  Report Type: Spontaneous
  Country: US (occurrence: US)
  Receive Date: 20150525
  Receipt Date: 20160608
  Transmission Date: 20160815
  Serious: Yes (Other)
  Sender: FDA-Public Use
  Company Number: US-JNJFOC-20140516104

PATIENT
  Sex: Male

DRUGS (4)
  1. RISPERDAL [Suspect]
     Active Substance: RISPERIDONE
     Indication: BIPOLAR DISORDER
     Dosage: IN VARYING DOSES OF 1.5-5 MG
     Route: 048
     Dates: end: 201311
  2. RISPERDAL [Suspect]
     Active Substance: RISPERIDONE
     Indication: ANGER
     Dosage: IN VARYING DOSES OF 1.5-5 MG
     Route: 048
     Dates: end: 201311
  3. RISPERDAL [Suspect]
     Active Substance: RISPERIDONE
     Indication: BIPOLAR DISORDER
     Dosage: IN VARYING DOSES OF 1.5-5 MG
     Route: 048
     Dates: start: 200103, end: 200311
  4. RISPERDAL [Suspect]
     Active Substance: RISPERIDONE
     Indication: ANGER
     Dosage: IN VARYING DOSES OF 1.5-5 MG
     Route: 048
     Dates: start: 200103, end: 200311

REACTIONS (3)
  - Weight increased [Recovering/Resolving]
  - Increased appetite [Recovering/Resolving]
  - Gynaecomastia [Recovering/Resolving]
